FAERS Safety Report 22361228 (Version 1)
Quarter: 2023Q2

REPORT INFORMATION
  Report Type: Report from Study
  Country: KR (occurrence: KR)
  Receive Date: 20230524
  Receipt Date: 20230524
  Transmission Date: 20230722
  Serious: Yes (Other)
  Sender: FDA-Public Use
  Company Number: KR-MYLANLABS-2023M1051780

PATIENT
  Age: 46 Year
  Sex: Female

DRUGS (6)
  1. TRASTUZUMAB [Suspect]
     Active Substance: TRASTUZUMAB
     Indication: Benign breast neoplasm
     Dosage: 600 MILLIGRAM, 3XW
     Route: 058
     Dates: start: 20160629
  2. PREGABALIN [Concomitant]
     Active Substance: PREGABALIN
     Dosage: 15 MILLIGRAM
     Route: 048
     Dates: start: 201510
  3. CELEBREX [Concomitant]
     Active Substance: CELECOXIB
     Dosage: 200 MILLIGRAM
     Route: 048
     Dates: start: 20160630
  4. CHLORPHENIRAMINE MALEATE [Concomitant]
     Active Substance: CHLORPHENIRAMINE MALEATE
     Dosage: 4 MILLIGRAM
     Route: 042
     Dates: start: 20160720, end: 20170528
  5. ASPIRIN [Concomitant]
     Active Substance: ASPIRIN
     Dosage: 100 MILLIGRAM
     Route: 048
     Dates: start: 20161202
  6. ACETAMINOPHEN [Concomitant]
     Active Substance: ACETAMINOPHEN
     Dosage: 650 MILLIGRAM (MICROENCAPSULATED)
     Route: 048
     Dates: start: 20160720, end: 20170528

REACTIONS (1)
  - Gastritis erosive [Recovered/Resolved]

NARRATIVE: CASE EVENT DATE: 20170502
